FAERS Safety Report 13022486 (Version 2)
Quarter: 2016Q4

REPORT INFORMATION
  Report Type: Report from Study
  Country: NL (occurrence: NL)
  Receive Date: 20161213
  Receipt Date: 20161220
  Transmission Date: 20170207
  Serious: Yes (Hospitalization)
  Sender: FDA-Public Use
  Company Number: NL-IPSEN BIOPHARMACEUTICALS, INC.-2016-10749

PATIENT
  Age: 66 Year
  Sex: Male

DRUGS (10)
  1. NITROLING SPRAY [Concomitant]
  2. PANTOPRAZOL [Concomitant]
     Active Substance: PANTOPRAZOLE SODIUM
  3. ATORVASTATINE [Concomitant]
     Active Substance: ATORVASTATIN
  4. SOMATULINE AUTOGEL [Suspect]
     Active Substance: LANREOTIDE ACETATE
     Indication: ACROMEGALY
     Dosage: 120 MG
     Route: 058
     Dates: start: 20091209
  5. COVERSYL [Concomitant]
     Active Substance: PERINDOPRIL
  6. CLOPIDOGREL [Concomitant]
     Active Substance: CLOPIDOGREL BISULFATE
  7. ACETYLSALICYLZUUR [Concomitant]
     Active Substance: ASPIRIN
  8. AVODART [Concomitant]
     Active Substance: DUTASTERIDE
  9. VOLCOLON [Concomitant]
  10. SOMAVERT [Concomitant]
     Active Substance: PEGVISOMANT

REACTIONS (2)
  - Bile duct obstruction [Unknown]
  - Hepatobiliary disease [Recovered/Resolved]

NARRATIVE: CASE EVENT DATE: 20161129
